FAERS Safety Report 11529258 (Version 1)
Quarter: 2015Q3

REPORT INFORMATION
  Report Type: Spontaneous
  Country: US (occurrence: None)
  Receive Date: 20150918
  Receipt Date: 20150918
  Transmission Date: 20151125
  Serious: No
  Sender: FDA-Public Use
  Company Number: None

PATIENT
  Age: 50 Year
  Sex: Female

DRUGS (1)
  1. VALACYCLOVIR 500MG MYLAN [Suspect]
     Active Substance: VALACYCLOVIR HYDROCHLORIDE
     Indication: HERPES VIRUS INFECTION
     Route: 048
     Dates: start: 20150814

REACTIONS (4)
  - Drug ineffective [None]
  - Herpes virus infection [None]
  - Infection [None]
  - Product quality issue [None]

NARRATIVE: CASE EVENT DATE: 20150814
